FAERS Safety Report 4706126-7 (Version None)
Quarter: 2005Q2

REPORT INFORMATION
  Report Type: 
  Country: None (occurrence: None)
  Receive Date: 20050627
  Receipt Date: 20040727
  Transmission Date: 20051028
  Serious: Yes (Other)
  Sender: FDA-Public Use
  Company Number: US-JNJFOC-20040708093

PATIENT
  Age: 75 Year
  Sex: Female
  Weight: 52.1637 kg

DRUGS (5)
  1. DURAGESIC-100 [Suspect]
     Indication: PAIN
     Dosage: 50 UG/HR, 1 IN 72 HOUR, TRANSDERMAL; 75 UG/HR, 1 IN 72 HOUR, TRANSDERMAL; 50 UG/HR, 1 IN 72 HOUR,
     Route: 062
     Dates: start: 20040301, end: 20040401
  2. DURAGESIC-100 [Suspect]
     Indication: PAIN
     Dosage: 50 UG/HR, 1 IN 72 HOUR, TRANSDERMAL; 75 UG/HR, 1 IN 72 HOUR, TRANSDERMAL; 50 UG/HR, 1 IN 72 HOUR,
     Route: 062
     Dates: start: 20040401, end: 20040601
  3. DURAGESIC-100 [Suspect]
     Indication: PAIN
     Dosage: 50 UG/HR, 1 IN 72 HOUR, TRANSDERMAL; 75 UG/HR, 1 IN 72 HOUR, TRANSDERMAL; 50 UG/HR, 1 IN 72 HOUR,
     Route: 062
     Dates: start: 20040601
  4. ATENOLOL [Concomitant]
  5. OTHER UNSPECIFIED HEART MEDICATIONS (CARDIAC THERAPY) [Concomitant]

REACTIONS (6)
  - CHOKING [None]
  - COUGH [None]
  - DIZZINESS [None]
  - DYSPHAGIA [None]
  - EATING DISORDER [None]
  - WEIGHT DECREASED [None]
